FAERS Safety Report 5663725-6 (Version None)
Quarter: 2008Q1

REPORT INFORMATION
  Report Type: 
  Country: None (occurrence: None)
  Receive Date: 20080310
  Receipt Date: 20080221
  Transmission Date: 20080703
  Serious: Yes (Other)
  Sender: FDA-Public Use
  Company Number: 2008US-13388

PATIENT
  Age: 16 Year
  Sex: Male

DRUGS (1)
  1. ISOTRETINOIN [Suspect]
     Indication: ACNE
     Dosage: 40 MG, BID, 2 IN AM, 2 IN PM, ORAL
     Route: 048
     Dates: start: 20071205, end: 20080221

REACTIONS (2)
  - HALLUCINATION [None]
  - PARANOIA [None]
